FAERS Safety Report 5744235-4 (Version None)
Quarter: 2008Q2

REPORT INFORMATION
  Report Type: 
  Country: None (occurrence: None)
  Receive Date: 20080520
  Receipt Date: 20080508
  Transmission Date: 20081010
  Serious: Yes (Hospitalization)
  Sender: FDA-Public Use
  Company Number: US-AVENTIS-200812188EU

PATIENT
  Age: 71 Year
  Sex: Male

DRUGS (45)
  1. LOVENOX [Suspect]
     Route: 058
     Dates: start: 20070718, end: 20070726
  2. PLENDIL [Concomitant]
     Indication: HYPERTENSION
  3. HYTRIN [Concomitant]
  4. ZOLOFT [Concomitant]
     Indication: DEPRESSION
  5. ZOLOFT [Concomitant]
     Indication: ANXIETY
  6. LISINOPRIL [Concomitant]
     Indication: HYPERTENSION
  7. PLAVIX [Concomitant]
     Indication: STENT PLACEMENT
  8. PLAVIX [Concomitant]
  9. SYNTHROID [Concomitant]
     Indication: HYPOTHYROIDISM
  10. ZOCOR [Concomitant]
  11. MIDAZOLAM HCL [Concomitant]
  12. FENTANYL [Concomitant]
  13. LIDOCAINE [Concomitant]
  14. LIDOCAINE [Concomitant]
  15. ZEMURON [Concomitant]
  16. PROPOFOL [Concomitant]
  17. ZOFRAN [Concomitant]
  18. RINGERS                            /00047801/ [Concomitant]
  19. SEVOFLURANE [Concomitant]
  20. ROPIVACAINE [Concomitant]
  21. CLONIDINE [Concomitant]
  22. OXYGEN [Concomitant]
  23. NITROUS OXIDE [Concomitant]
  24. KANTREX [Concomitant]
  25. SODIUM CHLORIDE [Concomitant]
  26. VITAGEL [Concomitant]
     Indication: PROPHYLAXIS
  27. LOPRESSOR [Concomitant]
     Indication: HYPERTENSION
  28. ASPIRIN [Concomitant]
     Indication: STENT PLACEMENT
  29. COUMADIN [Concomitant]
  30. LORTAB [Concomitant]
  31. MULTI-VITAMINS [Concomitant]
  32. ANCEF                              /00288502/ [Concomitant]
     Indication: INFECTION PROPHYLAXIS
  33. LEVAQUIN [Concomitant]
     Indication: URINARY TRACT INFECTION
  34. MORPHINE [Concomitant]
  35. PROTONIX [Concomitant]
  36. SENOKOT [Concomitant]
     Indication: CONSTIPATION
  37. VANCOMYCIN [Concomitant]
     Indication: INFECTION PROPHYLAXIS
  38. TYLENOL [Concomitant]
  39. BISACODYL [Concomitant]
     Indication: CONSTIPATION
  40. ROBAXIN [Concomitant]
     Indication: MUSCLE SPASMS
  41. AMBIEN [Concomitant]
     Indication: INSOMNIA
  42. PRILOSEC [Concomitant]
  43. BAZA [Concomitant]
  44. WATER [Concomitant]
  45. RESTORIL                           /00393701/ [Concomitant]
     Indication: INSOMNIA

REACTIONS (1)
  - HAEMATOCRIT DECREASED [None]
